FAERS Safety Report 6634540-1 (Version None)
Quarter: 2010Q2

REPORT INFORMATION
  Report Type: 
  Country: None (occurrence: None)
  Receive Date: 20100225
  Receipt Date: 20090115
  Transmission Date: 20101027
  Serious: Yes (Other)
  Sender: FDA-Public Use
  Company Number: 591567

PATIENT
  Age: 14 Year
  Sex: Male
  Weight: 129 kg

DRUGS (1)
  1. ACCUTANE [Suspect]
     Indication: ACNE
     Dosage: 40 MG 1 PER DAY
     Dates: start: 19940517, end: 19991013

REACTIONS (7)
  - ARTHRALGIA [None]
  - BLOOD ALKALINE PHOSPHATASE INCREASED [None]
  - BLOOD PHOSPHORUS INCREASED [None]
  - COLITIS ULCERATIVE [None]
  - DEPRESSION [None]
  - INFLAMMATORY BOWEL DISEASE [None]
  - IRON DEFICIENCY ANAEMIA [None]
